FAERS Safety Report 15995566 (Version 1)
Quarter: 2019Q1

REPORT INFORMATION
  Report Type: Spontaneous
  Country: US (occurrence: US)
  Receive Date: 20190222
  Receipt Date: 20190222
  Transmission Date: 20190418
  Serious: Yes (Other)
  Sender: FDA-Public Use
  Company Number: US-ASTRAZENECA-2019SE28360

PATIENT
  Age: 80 Year
  Sex: Female

DRUGS (2)
  1. FASLODEX [Suspect]
     Active Substance: FULVESTRANT
     Dosage: UNKNOWN DOSE AND FREQUENCY
     Route: 030
  2. IBRANCE [Suspect]
     Active Substance: PALBOCICLIB
     Dosage: UNKNOWN DOSE AND FREQUENCY
     Route: 048

REACTIONS (1)
  - White blood cell count decreased [Unknown]
